FAERS Safety Report 25114801 (Version 1)
Quarter: 2025Q1

REPORT INFORMATION
  Report Type: Spontaneous
  Country: US (occurrence: None)
  Receive Date: 20250324
  Receipt Date: 20250324
  Transmission Date: 20250409
  Serious: No
  Sender: FDA-CTU
  Company Number: None

PATIENT

DRUGS (2)
  1. BRUKINSA [Suspect]
     Active Substance: ZANUBRUTINIB
  2. AMARYL [Suspect]
     Active Substance: GLIMEPIRIDE

REACTIONS (2)
  - Peripheral swelling [None]
  - Glomerular filtration rate decreased [None]
